FAERS Safety Report 4471697-5 (Version None)
Quarter: 2004Q4

REPORT INFORMATION
  Report Type: 
  Country: None (occurrence: None)
  Receive Date: 20041007
  Receipt Date: 20040924
  Transmission Date: 20050328
  Serious: No
  Sender: FDA-Public Use
  Company Number: 2004UW19953

PATIENT
  Age: 45 Year
  Sex: Female

DRUGS (8)
  1. ZOMIG [Suspect]
     Dosage: 2.5 MG PO
     Route: 048
  2. FLAG [Suspect]
  3. ALESSE [Concomitant]
  4. AMOXIL [Concomitant]
  5. CELEXA [Concomitant]
  6. IMOVANE [Concomitant]
  7. INDERAL LA [Concomitant]
  8. XANAX [Concomitant]

REACTIONS (4)
  - CLOSTRIDIUM COLITIS [None]
  - INFECTION [None]
  - PELVIC INFLAMMATORY DISEASE [None]
  - RETROPERITONEAL FIBROSIS [None]
